FAERS Safety Report 10698071 (Version 1)
Quarter: 2015Q1

REPORT INFORMATION
  Report Type: Spontaneous
  Country: US (occurrence: None)
  Receive Date: 20150107
  Receipt Date: 20150107
  Transmission Date: 20150721
  Serious: Yes (Other)
  Sender: FDA-Public Use
  Company Number: None

PATIENT
  Age: 69 Year
  Sex: Male
  Weight: 97.7 kg

DRUGS (1)
  1. ATORVASTATIN [Suspect]
     Active Substance: ATORVASTATIN
     Indication: ABDOMINAL PAIN
     Route: 048
     Dates: start: 20080108, end: 20150106

REACTIONS (2)
  - Product substitution issue [None]
  - Abdominal pain [None]

NARRATIVE: CASE EVENT DATE: 20141231
